FAERS Safety Report 5331911-0 (Version None)
Quarter: 2007Q1

REPORT INFORMATION
  Report Type: 
  Country: None (occurrence: None)
  Receive Date: 20070306
  Receipt Date: 20060620
  Transmission Date: 20070707
  Serious: Yes (Hospitalization)
  Sender: FDA-Public Use
  Company Number: A03200604020

PATIENT
  Age: 77 Year
  Sex: Female
  Weight: 49.89 kg

DRUGS (7)
  1. PLAVIX [Suspect]
     Indication: MYOCARDIAL INFARCTION
     Dosage: 75 MG QD - ORAL
     Route: 048
     Dates: start: 20060211
  2. PLAVIX [Suspect]
     Indication: STENT PLACEMENT
     Dosage: 75 MG QD - ORAL
     Route: 048
     Dates: start: 20060211
  3. ZOLPIDEM TARTRATE [Concomitant]
  4. CARVEDILOL [Concomitant]
  5. GLYCERYL TRINITRATE [Concomitant]
  6. EZETIMIBE / SIMVASTATIN [Concomitant]
  7. WARFARIN SODIUM [Concomitant]

REACTIONS (3)
  - CHEST PAIN [None]
  - HYPOTENSION [None]
  - PALPITATIONS [None]
